FAERS Safety Report 8270099-3 (Version None)
Quarter: 2012Q2

REPORT INFORMATION
  Report Type: 
  Country: None (occurrence: None)
  Receive Date: 20120410
  Receipt Date: 20120329
  Transmission Date: 20120825
  Serious: Yes (Hospitalization)
  Sender: FDA-Public Use
  Company Number: PHHY2012FR022726

PATIENT
  Sex: Female

DRUGS (8)
  1. VALSARTAN  AND HYDROCHLOROTHIAZIDE [Suspect]
     Indication: HYPERTENSION
     Dosage: 1 DF, QD
     Route: 048
  2. CITALOPRAM HYDROBROMIDE [Suspect]
     Indication: DEPRESSION
     Dosage: 1 DF, QD
     Route: 048
     Dates: end: 20110912
  3. LERCANIDIPINE [Concomitant]
     Indication: HYPERTENSION
     Dosage: 10 MG, QD
  4. ASPIRIN [Concomitant]
     Indication: STENT PLACEMENT
     Dosage: 160 MG, QD
  5. LEVOTHYROXINE SODIUM [Concomitant]
     Indication: HYPOTHYROIDISM
     Dosage: 50 UG, QD
  6. SOLIAN [Concomitant]
     Indication: SUICIDE ATTEMPT
     Dosage: 50 MG, TID
  7. PROPRANOLOL [Concomitant]
     Indication: HYPERTENSION
     Dosage: 160 MG, QD
  8. ATORVASTATIN [Concomitant]
     Indication: DYSLIPIDAEMIA
     Dosage: 20 MG, QD

REACTIONS (5)
  - GENERAL PHYSICAL HEALTH DETERIORATION [None]
  - HYPONATRAEMIA [None]
  - DECREASED APPETITE [None]
  - PARKINSONISM [None]
  - ASTHENIA [None]
